FAERS Safety Report 9741555 (Version 2)
Quarter: 2015Q2

REPORT INFORMATION
  Report Type: Spontaneous
  Country: CZ (occurrence: CZ)
  Receive Date: 20131210
  Receipt Date: 20150520
  Transmission Date: 20150821
  Serious: Yes (Disabling, Other)
  Sender: FDA-Public Use
  Company Number: PHHY2013CZ140539

PATIENT
  Sex: Male

DRUGS (2)
  1. PREDNISONE. [Suspect]
     Active Substance: PREDNISONE
     Indication: CHEMOTHERAPY
     Dosage: 5 MG, BID
     Route: 048
  2. DOCETAXEL. [Suspect]
     Active Substance: DOCETAXEL
     Indication: CHEMOTHERAPY
     Dosage: 75 MG/M2, UNK
     Route: 065

REACTIONS (9)
  - Burning sensation [Recovered/Resolved]
  - Thermohyperaesthesia [Recovering/Resolving]
  - Neuropathy peripheral [Recovered/Resolved]
  - Muscular weakness [Recovered/Resolved]
  - Neuralgia [Recovered/Resolved]
  - Quality of life decreased [Recovered/Resolved]
  - Depression [Unknown]
  - Paraesthesia [Recovering/Resolving]
  - Pain in extremity [Recovered/Resolved]
